FAERS Safety Report 23098162 (Version 2)
Quarter: 2023Q4

REPORT INFORMATION
  Report Type: Report from Study
  Country: IT (occurrence: IT)
  Receive Date: 20231023
  Receipt Date: 20231109
  Transmission Date: 20240110
  Serious: Yes (Hospitalization, Other)
  Sender: FDA-Public Use
  Company Number: IT-BAXTER-2023BAX032497

PATIENT
  Age: 74 Year
  Sex: Female
  Weight: 63 kg

DRUGS (33)
  1. PREDNISONE [Suspect]
     Active Substance: PREDNISONE
     Indication: Diffuse large B-cell lymphoma
     Dosage: 100 MG DAILY C1-6, DAY 1-5, ONGOING
     Route: 048
     Dates: start: 20230620
  2. DOXORUBICIN [Suspect]
     Active Substance: DOXORUBICIN
     Indication: Diffuse large B-cell lymphoma
     Dosage: 86.5 MG, EVERY 3 WEEKS, ONGOING
     Route: 042
     Dates: start: 20230620
  3. DOXORUBICIN [Suspect]
     Active Substance: DOXORUBICIN
     Dosage: 90.5 MILLIGRAM, Q3W
     Route: 042
     Dates: start: 20230620, end: 20230801
  4. DOXORUBICIN [Suspect]
     Active Substance: DOXORUBICIN
     Dosage: 86.5 MILLIGRAM, Q3W
     Route: 042
     Dates: start: 20230822
  5. RITUXIMAB [Suspect]
     Active Substance: RITUXIMAB
     Indication: Diffuse large B-cell lymphoma
     Dosage: 678.6 MILLIGRAM, Q3W
     Route: 042
     Dates: start: 20200620, end: 20230801
  6. RITUXIMAB [Suspect]
     Active Substance: RITUXIMAB
     Dosage: 648.9 MILLIGRAM, Q3W
     Route: 042
     Dates: start: 20230822
  7. RITUXIMAB [Suspect]
     Active Substance: RITUXIMAB
     Dosage: 678.6 MILLIGRAM, Q3W ONGOING
     Route: 042
     Dates: start: 20200620
  8. CYCLOPHOSPHAMIDE [Suspect]
     Active Substance: CYCLOPHOSPHAMIDE
     Indication: Diffuse large B-cell lymphoma
     Dosage: 1297.9 MILLIGRAM, Q3W
     Route: 042
     Dates: start: 20230822
  9. CYCLOPHOSPHAMIDE [Suspect]
     Active Substance: CYCLOPHOSPHAMIDE
     Dosage: 1357.3 MILLIGRAM, Q3W
     Route: 042
     Dates: start: 20230620, end: 20230801
  10. CYCLOPHOSPHAMIDE [Suspect]
     Active Substance: CYCLOPHOSPHAMIDE
     Dosage: 1297.9 MILLIGRAM, Q3W
     Route: 042
     Dates: start: 20230620
  11. VINCRISTINE [Suspect]
     Active Substance: VINCRISTINE
     Indication: Diffuse large B-cell lymphoma
     Dosage: 2 MILLIGRAM, Q3W, ONGOING
     Route: 042
     Dates: start: 20230620
  12. BACTRIM [Concomitant]
     Active Substance: SULFAMETHOXAZOLE\TRIMETHOPRIM
     Indication: Antifungal prophylaxis
     Dosage: 960 MILLIGRAM, 3/WEEKS
     Route: 065
     Dates: start: 20230620
  13. POLYETHYLENE GLYCOLS [Concomitant]
     Active Substance: POLYETHYLENE GLYCOLS
     Indication: Constipation
     Dosage: 1 PACKET, AS NECESSARY
     Route: 065
     Dates: start: 20230624
  14. SODIUM CHLORIDE [Concomitant]
     Active Substance: SODIUM CHLORIDE
     Indication: Fluid replacement
     Dosage: QD, 10 VIAL, EVERY 1 DAYS
     Route: 065
     Dates: start: 20230621
  15. ACYCLOVIR [Concomitant]
     Active Substance: ACYCLOVIR
     Indication: Antiviral prophylaxis
     Dosage: 400 MILLIGRAM, QD
     Route: 065
     Dates: start: 20230620
  16. ACETAMINOPHEN [Concomitant]
     Active Substance: ACETAMINOPHEN
     Indication: Antipyresis
     Dosage: 1000 MILLIGRAM, PRN
     Route: 065
     Dates: start: 20230620
  17. BISOPROLOL [Concomitant]
     Active Substance: BISOPROLOL\BISOPROLOL FUMARATE
     Indication: Hypertension
     Dosage: 1.25 MILLIGRAM, QD
     Route: 065
     Dates: start: 202211
  18. FILGRASTIM [Concomitant]
     Active Substance: FILGRASTIM
     Indication: Prophylaxis
     Dosage: 30 MU/L, AS NECESSARY
     Route: 065
     Dates: start: 20230719, end: 20230918
  19. PANTOPRAZOLE [Concomitant]
     Active Substance: PANTOPRAZOLE
     Indication: Antacid therapy
     Dosage: 20 MILLIGRAM, QD
     Route: 065
     Dates: start: 20230620
  20. FUROSEMIDE [Concomitant]
     Active Substance: FUROSEMIDE
     Indication: Prophylaxis
     Dosage: 25 + 37 MG, EVERY 2 DAYS
     Route: 065
     Dates: start: 202211
  21. VALSARTAN [Concomitant]
     Active Substance: VALSARTAN
     Indication: Hypertension
     Dosage: 320 MILLIGRAM, QD
     Route: 065
     Dates: start: 202211
  22. EPOETIN ALFA BS [Concomitant]
     Active Substance: ERYTHROPOIETIN
     Indication: Anaemia
     Dosage: 40000 UL, EVERY 1 WEEKS
     Route: 065
     Dates: start: 20230629
  23. AMIODARONE [Concomitant]
     Active Substance: AMIODARONE
     Indication: Arrhythmia prophylaxis
     Dosage: 200 MILLIGRAM, QD
     Route: 065
     Dates: start: 202211
  24. AMIODARONE [Concomitant]
     Active Substance: AMIODARONE
     Dosage: 200 MILLIGRAM, QD
     Route: 065
     Dates: start: 20231001
  25. METOCLOPRAMIDE [Concomitant]
     Active Substance: METOCLOPRAMIDE
     Indication: Prophylaxis of nausea and vomiting
     Dosage: 1 DOSAGE FORM, AS NECESSARY
     Route: 065
     Dates: start: 20230622
  26. CETIRIZINE [Concomitant]
     Active Substance: CETIRIZINE HYDROCHLORIDE
     Indication: Injection site reaction
     Dosage: 10 MG, EVERY 24 HOURS
     Route: 065
     Dates: start: 20230912
  27. FUROSEMIDE\SPIRONOLACTONE [Concomitant]
     Active Substance: FUROSEMIDE\SPIRONOLACTONE
     Indication: Prophylaxis
     Dosage: 25 + 37 MG, EVERY 2 DAYS,START DATE: NOV-2022
     Route: 065
     Dates: start: 202211
  28. FUROSEMIDE\SPIRONOLACTONE [Concomitant]
     Active Substance: FUROSEMIDE\SPIRONOLACTONE
     Dosage: 25 + 37 MG, EVERY 2 DAYS,START DATE: NOV-2022
     Route: 065
     Dates: start: 20230929
  29. ENOXAPARIN SODIUM [Concomitant]
     Active Substance: ENOXAPARIN SODIUM
     Indication: Thrombosis prophylaxis
     Dosage: 6000 MICROLITER, BID (6000 UL, 2/DAYS)
     Route: 065
     Dates: start: 20230629, end: 20230922
  30. LACTULOSE [Concomitant]
     Active Substance: LACTULOSE
     Indication: Constipation prophylaxis
     Dosage: 66.7 %, AS NECESSARY
     Route: 065
     Dates: start: 20230719
  31. SENNOSIDES A AND B [Concomitant]
     Active Substance: SENNOSIDES A AND B
     Indication: Constipation prophylaxis
     Dosage: 12 MG, AS NECESSARY
     Route: 065
     Dates: start: 20230719, end: 20231002
  32. BETAMETHASONE VALERATE\GENTAMICIN SULFATE [Concomitant]
     Active Substance: BETAMETHASONE VALERATE\GENTAMICIN SULFATE
     Indication: Injection site reaction
     Dosage: 1 APPLICATION, EVERY 1 DAYS
     Route: 065
     Dates: start: 20230910, end: 20230917
  33. LEVOFLOXACIN [Concomitant]
     Active Substance: LEVOFLOXACIN
     Indication: Prophylaxis
     Dosage: 500 MG, AS NECESSARY
     Route: 065
     Dates: start: 20230622

REACTIONS (1)
  - Febrile neutropenia [Recovered/Resolved]

NARRATIVE: CASE EVENT DATE: 20230922
